FAERS Safety Report 6612192-4 (Version None)
Quarter: 2010Q1

REPORT INFORMATION
  Report Type: 
  Country: None (occurrence: None)
  Receive Date: 20100302
  Receipt Date: 20100302
  Transmission Date: 20100710
  Serious: Yes (Other)
  Sender: FDA-Public Use
  Company Number: None

PATIENT
  Age: 56 Year
  Sex: Female
  Weight: 63.5036 kg

DRUGS (1)
  1. AMOX TR-K CLV 875-125 MG GENERIC FOR AUGMENTIN 875-125 [Suspect]
     Indication: SINUSITIS
     Dosage: ONE TABLET BY MOUTH 2 X DAILY PO
     Route: 048
     Dates: start: 20100128, end: 20100209

REACTIONS (12)
  - ABDOMINAL PAIN UPPER [None]
  - ACTIVITIES OF DAILY LIVING IMPAIRED [None]
  - ARTHRALGIA [None]
  - FATIGUE [None]
  - GAIT DISTURBANCE [None]
  - IMPAIRED WORK ABILITY [None]
  - LYMPHADENOPATHY [None]
  - PYREXIA [None]
  - RASH [None]
  - SERUM SICKNESS [None]
  - URTICARIA [None]
  - WHEEZING [None]
